FAERS Safety Report 6061262-0 (Version None)
Quarter: 2009Q1

REPORT INFORMATION
  Report Type: 
  Country: None (occurrence: None)
  Receive Date: 20090202
  Receipt Date: 20090128
  Transmission Date: 20090719
  Serious: Yes (Other)
  Sender: FDA-Public Use
  Company Number: US-BAYER-200910288BCC

PATIENT
  Age: 70 Year
  Sex: Female
  Weight: 45 kg

DRUGS (6)
  1. ALEVE [Suspect]
     Indication: ARTHRITIS
     Dosage: TOTAL DAILY DOSE: 220 MG  UNIT DOSE: 220 MG
     Dates: start: 20090111, end: 20090125
  2. ZOCOR [Concomitant]
  3. MULTI-VITAMIN [Concomitant]
  4. ROLAIDS [Concomitant]
  5. CVS ASPIRIN [Concomitant]
  6. CALCIUM SUPPLEMENT (NOS) [Concomitant]

REACTIONS (1)
  - RECTAL HAEMORRHAGE [None]
